FAERS Safety Report 7283365-5 (Version None)
Quarter: 2011Q1

REPORT INFORMATION
  Report Type: 
  Country: None (occurrence: None)
  Receive Date: 20110209
  Receipt Date: 20100802
  Transmission Date: 20110831
  Serious: No
  Sender: FDA-Public Use
  Company Number: A0860612A

PATIENT
  Age: 93 Year
  Sex: Female
  Weight: 65.5 kg

DRUGS (8)
  1. PAXIL [Suspect]
     Indication: DEPRESSION
     Dosage: 30MG PER DAY
     Route: 048
     Dates: start: 20100517
  2. ASPIRIN [Concomitant]
     Dosage: 81MG PER DAY
     Route: 048
  3. DILTIAZEM [Concomitant]
     Dosage: 120MG PER DAY
     Route: 048
  4. CAPOTEN [Concomitant]
     Dosage: 125MG TWICE PER DAY
     Route: 048
  5. VITAMIN D [Concomitant]
  6. ENALAPRIL MALEATE [Concomitant]
     Indication: BLOOD PRESSURE
     Route: 048
  7. EYE DROPS [Concomitant]
  8. LEVOTHROID [Concomitant]
     Dosage: 100MCG PER DAY
     Route: 048

REACTIONS (2)
  - LETHARGY [None]
  - ASTHENIA [None]
